FAERS Safety Report 8606692 (Version 6)
Quarter: 2012Q4

REPORT INFORMATION
  Report Type: 
  Country: CO (occurrence: CO)
  Receive Date: 20120608
  Receipt Date: 20121017
  Transmission Date: 20130627
  Serious: Yes (Hospitalization, Other)
  Sender: FDA-Public Use
  Company Number: CO-AMGEN-COLSP2012034249

PATIENT
  Age: 63 Year
  Sex: Female

DRUGS (7)
  1. ENBREL [Suspect]
     Indication: RHEUMATOID ARTHRITIS
     Dosage: 50 mg, weekly
     Dates: start: 20120510, end: 20120716
  2. TRAMADOL [Concomitant]
     Dosage: UNK
  3. LOSARTAN [Concomitant]
     Dosage: 50 mg, once a day
  4. LYRICA [Concomitant]
     Dosage: 75 mg, twice a day
  5. CORTISONE [Concomitant]
     Dosage: 8 mg once a day
  6. CORTISONE [Concomitant]
     Dosage: 16 mg once a day
  7. HYDROCHLOROTHIAZIDE [Concomitant]
     Dosage: UNK

REACTIONS (1)
  - Pericardial effusion [Unknown]
